FAERS Safety Report 9659937 (Version 3)
Quarter: 2013Q4

REPORT INFORMATION
  Report Type: Spontaneous
  Country: JP (occurrence: JP)
  Receive Date: 20131031
  Receipt Date: 20131211
  Transmission Date: 20140711
  Serious: Yes (Other)
  Sender: FDA-Public Use
  Company Number: JP-JNJFOC-20131006648

PATIENT
  Age: 70 Year
  Sex: Male

DRUGS (12)
  1. TRAMCET [Suspect]
     Indication: PAIN
     Dosage: FOR 4 DAYS
     Route: 048
  2. TRAMCET [Suspect]
     Indication: PAIN
     Dosage: FOR 4 DAYS
     Route: 048
  3. TRAMCET [Suspect]
     Indication: PAIN
     Dosage: FOR 7 DAYS
     Route: 048
     Dates: start: 20130927, end: 20131005
  4. WARFARIN POTASSIUM [Concomitant]
     Route: 048
  5. ATELEC [Concomitant]
     Route: 048
  6. DIOVAN [Concomitant]
     Route: 048
  7. TAKEPRON [Concomitant]
     Route: 048
  8. ZYLORIC [Concomitant]
     Route: 048
  9. HALFDIGOXIN [Concomitant]
     Route: 048
  10. ALDACTONE A [Concomitant]
     Route: 048
  11. LASIX [Concomitant]
     Route: 065
  12. MYSLEE [Concomitant]
     Route: 048

REACTIONS (2)
  - Skin discolouration [Unknown]
  - Treatment noncompliance [Unknown]
